FAERS Safety Report 8891833 (Version 1)
Quarter: 2012Q4

REPORT INFORMATION
  Report Type: 
  Country: US (occurrence: US)
  Receive Date: 20121107
  Receipt Date: 20121107
  Transmission Date: 20130627
  Serious: No
  Sender: FDA-Public Use
  Company Number: US-AMGEN-USASP2011051162

PATIENT
  Age: 24 Year
  Sex: Male

DRUGS (4)
  1. ENBREL [Suspect]
     Indication: PRODUCT USED FOR UNKNOWN INDICATION
     Dosage: 50 mg, qwk
     Route: 048
  2. SOMA [Concomitant]
     Dosage: 250 mg, UNK
     Route: 048
  3. OXCARBAZEPIN ARCANA [Concomitant]
     Dosage: 150 mg, UNK
     Route: 048
  4. VICODIN [Concomitant]
     Dosage: UNK
     Route: 048

REACTIONS (2)
  - Injection site swelling [Unknown]
  - Injection site reaction [Unknown]
